FAERS Safety Report 7311181-4 (Version None)
Quarter: 2011Q1

REPORT INFORMATION
  Report Type: 
  Country: None (occurrence: None)
  Receive Date: 20110214
  Receipt Date: 20110209
  Transmission Date: 20110831
  Serious: Yes (Life-Threatening, Hospitalization)
  Sender: FDA-Public Use
  Company Number: 2010SP037411

PATIENT
  Age: 32 Year
  Sex: Male
  Weight: 76 kg

DRUGS (11)
  1. RIZE [Concomitant]
  2. PEG-INTRON [Suspect]
     Indication: HEPATITIS C
     Dosage: 100 MCG;QW;SC; 80 MCG;QW;SC; 100 MCG;QW;SC
     Route: 058
     Dates: start: 20100602, end: 20100614
  3. PEG-INTRON [Suspect]
     Indication: HEPATITIS C
     Dosage: 100 MCG;QW;SC; 80 MCG;QW;SC; 100 MCG;QW;SC
     Route: 058
     Dates: start: 20100701, end: 20100701
  4. PEG-INTRON [Suspect]
     Indication: HEPATITIS C
     Dosage: 100 MCG;QW;SC; 80 MCG;QW;SC; 100 MCG;QW;SC
     Route: 058
     Dates: start: 20100623, end: 20100623
  5. TAKEPRON [Concomitant]
  6. GASLON N [Concomitant]
  7. CLARITIN [Concomitant]
  8. HALCION [Concomitant]
  9. VOLTAREN [Concomitant]
  10. REBETOL [Suspect]
     Indication: HEPATITIS C
     Dosage: 400 MG;BID;PO; 200 MG;BID;PO
     Route: 048
     Dates: start: 20100609, end: 20100707
  11. REBETOL [Suspect]
     Indication: HEPATITIS C
     Dosage: 400 MG;BID;PO; 200 MG;BID;PO
     Route: 048
     Dates: start: 20100602, end: 20100607

REACTIONS (3)
  - CONTINUOUS HAEMODIAFILTRATION [None]
  - HAEMOLYTIC URAEMIC SYNDROME [None]
  - ALTERED STATE OF CONSCIOUSNESS [None]
